FAERS Safety Report 21015792 (Version 1)
Quarter: 2022Q2

REPORT INFORMATION
  Report Type: Spontaneous
  Country: US (occurrence: US)
  Receive Date: 20220628
  Receipt Date: 20220628
  Transmission Date: 20220721
  Serious: No
  Sender: FDA-Public Use
  Company Number: US-drreddys-SPO/USA/22/0151271

PATIENT
  Age: 41 Year
  Sex: Female

DRUGS (1)
  1. ZENATANE [Suspect]
     Active Substance: ISOTRETINOIN
     Indication: Product used for unknown indication
     Dosage: RMA ISSUE DATE 06 APRIL 2022, 08:40:49 AM, 02 MAY 2022, 07:49:25 AM

REACTIONS (1)
  - Treatment noncompliance [Unknown]
